FAERS Safety Report 9236029 (Version 2)
Quarter: 2013Q2

REPORT INFORMATION
  Report Type: Spontaneous
  Country: US (occurrence: US)
  Receive Date: 20130417
  Receipt Date: 20130430
  Transmission Date: 20140414
  Serious: Yes (Death)
  Sender: FDA-Public Use
  Company Number: US-PURDUE-USA-2013-0101090

PATIENT
  Sex: Male

DRUGS (1)
  1. OXYCONTIN TABLETS [Suspect]
     Indication: PAIN
     Dosage: 15 MG, UNK
     Route: 048
     Dates: start: 2009

REACTIONS (4)
  - Accidental overdose [Fatal]
  - Renal failure [Fatal]
  - Pneumonia [Fatal]
  - Back pain [Unknown]
